FAERS Safety Report 6880098-1 (Version None)
Quarter: 2010Q3

REPORT INFORMATION
  Report Type: 
  Country: None (occurrence: None)
  Receive Date: 20100728
  Receipt Date: 20090918
  Transmission Date: 20110219
  Serious: Yes (Other)
  Sender: FDA-Public Use
  Company Number: US-BRISTOL-MYERS SQUIBB COMPANY-14778302

PATIENT
  Age: 64 Year
  Sex: Female

DRUGS (2)
  1. SPRYCEL [Suspect]
     Dates: start: 20080301, end: 20090201
  2. TASIGNA [Concomitant]

REACTIONS (6)
  - ANAEMIA [None]
  - CONSTIPATION [None]
  - DYSPNOEA [None]
  - NAUSEA [None]
  - NO THERAPEUTIC RESPONSE [None]
  - PLATELET COUNT INCREASED [None]
